FAERS Safety Report 7719046-0 (Version None)
Quarter: 2011Q3

REPORT INFORMATION
  Report Type: 
  Country: None (occurrence: None)
  Receive Date: 20110830
  Receipt Date: 20110829
  Transmission Date: 20111222
  Serious: Yes (Hospitalization)
  Sender: FDA-Public Use
  Company Number: CA-ABBOTT-11P-028-0849862-00

PATIENT
  Sex: Male
  Weight: 86.26 kg

DRUGS (1)
  1. LUPRON DEPOT [Suspect]
     Indication: PROSTATE CANCER
     Dates: start: 20090503

REACTIONS (4)
  - HIP FRACTURE [None]
  - BONE NEOPLASM MALIGNANT [None]
  - ARTHRALGIA [None]
  - NEOPLASM MALIGNANT [None]
